FAERS Safety Report 6189963-4 (Version None)
Quarter: 2009Q2

REPORT INFORMATION
  Report Type: 
  Country: None (occurrence: None)
  Receive Date: 20090514
  Receipt Date: 20090506
  Transmission Date: 20091009
  Serious: Yes (Hospitalization)
  Sender: FDA-Public Use
  Company Number: PHHY2009DE17350

PATIENT
  Sex: Female
  Weight: 69 kg

DRUGS (1)
  1. AREDIA [Suspect]
     Indication: OSTEOMYELITIS CHRONIC
     Dosage: 30 MG, UNK

REACTIONS (4)
  - CARDIOVASCULAR DISORDER [None]
  - CATHETERISATION VENOUS [None]
  - PYREXIA [None]
  - THROMBOPHLEBITIS [None]
